FAERS Safety Report 7091137-X (Version None)
Quarter: 2010Q4

REPORT INFORMATION
  Report Type: 
  Country: None (occurrence: None)
  Receive Date: 20101109
  Receipt Date: 20101109
  Transmission Date: 20110411
  Serious: Yes (Hospitalization, Other)
  Sender: FDA-Public Use
  Company Number: DE-ROCHE-725070

PATIENT
  Sex: Male
  Weight: 108 kg

DRUGS (16)
  1. METHOXY POLYETHYLENE GLYCOL-EPOETIN BETA [Suspect]
     Route: 042
     Dates: start: 20100528, end: 20100723
  2. METHOXY POLYETHYLENE GLYCOL-EPOETIN BETA [Suspect]
     Route: 042
     Dates: start: 20100724, end: 20100820
  3. METHOXY POLYETHYLENE GLYCOL-EPOETIN BETA [Suspect]
     Route: 042
     Dates: start: 20100821, end: 20100917
  4. METHOXY POLYETHYLENE GLYCOL-EPOETIN BETA [Suspect]
     Route: 042
     Dates: start: 20100918
  5. ASPIRIN [Suspect]
     Route: 048
  6. AMLODIPINE [Concomitant]
     Indication: HYPERTENSION
     Route: 048
     Dates: start: 19970419
  7. CARVEDILOL [Concomitant]
     Route: 048
     Dates: start: 20021113
  8. VOTUM [Concomitant]
     Indication: HYPERTENSION
     Route: 048
     Dates: start: 20030305
  9. TORASEMID [Concomitant]
     Indication: OEDEMA
     Route: 048
     Dates: start: 20030929
  10. AQUEX [Concomitant]
     Indication: HYPERTENSION
     Route: 048
     Dates: start: 20071115
  11. ORFIRIL [Concomitant]
     Route: 048
     Dates: start: 20061113
  12. MIMPARA [Concomitant]
     Indication: HYPERPARATHYROIDISM SECONDARY
     Route: 048
     Dates: start: 20071002
  13. MOXONIDINE [Concomitant]
     Indication: HYPERTENSION
     Route: 048
     Dates: start: 20071105
  14. FOSRENOL [Concomitant]
     Route: 048
     Dates: start: 20080730
  15. NEPRESSOL [Concomitant]
     Indication: HYPERTENSION
     Route: 048
     Dates: start: 20090527
  16. FERRLECIT [Concomitant]
     Indication: IRON DEFICIENCY
     Dates: start: 20021106

REACTIONS (8)
  - BACTERIAL INFECTION [None]
  - DIVERTICULUM INTESTINAL [None]
  - GALLSTONE ILEUS [None]
  - HAEMOGLOBIN DECREASED [None]
  - HAEMORRHAGIC ANAEMIA [None]
  - PERITONITIS [None]
  - SMALL INTESTINAL PERFORATION [None]
  - WOUND DEHISCENCE [None]
